FAERS Safety Report 13584069 (Version 1)
Quarter: 2017Q2

REPORT INFORMATION
  Report Type: Report from Study
  Country: None (occurrence: BR)
  Receive Date: 20170526
  Receipt Date: 20170526
  Transmission Date: 20170830
  Serious: Yes (Other)
  Sender: FDA-Public Use
  Company Number: BR-ABBVIE-17K-020-1987152-00

PATIENT
  Sex: Female

DRUGS (1)
  1. HUMIRA [Suspect]
     Active Substance: ADALIMUMAB
     Indication: RHEUMATOID ARTHRITIS
     Route: 058
     Dates: start: 20150128

REACTIONS (8)
  - Abdominal distension [Unknown]
  - Vision blurred [Unknown]
  - Eye irritation [Unknown]
  - Abnormal faeces [Unknown]
  - Cardiac disorder [Unknown]
  - Gastrointestinal disorder [Unknown]
  - Ischaemia [Unknown]
  - Pain [Unknown]

NARRATIVE: CASE EVENT DATE: 2017
